FAERS Safety Report 7371624-7 (Version None)
Quarter: 2011Q1

REPORT INFORMATION
  Report Type: 
  Country: None (occurrence: None)
  Receive Date: 20110324
  Receipt Date: 20110321
  Transmission Date: 20110831
  Serious: Yes (Disabling, Other)
  Sender: FDA-Public Use
  Company Number: FR-SANOFI-AVENTIS-2011SA017422

PATIENT
  Sex: Male

DRUGS (2)
  1. MEDIATOR [Suspect]
     Dates: start: 19950101, end: 20090901
  2. PLAVIX [Suspect]
     Route: 048

REACTIONS (5)
  - TACHYCARDIA [None]
  - SWELLING [None]
  - SKIN DISORDER [None]
  - PULMONARY OEDEMA [None]
  - DYSPNOEA [None]
